FAERS Safety Report 10706451 (Version 1)
Quarter: 2015Q1

REPORT INFORMATION
  Report Type: Spontaneous
  Country: US (occurrence: None)
  Receive Date: 20150109
  Receipt Date: 20150109
  Transmission Date: 20150721
  Serious: Yes (Other)
  Sender: FDA-Public Use
  Company Number: None

PATIENT
  Age: 42 Year
  Sex: Male
  Weight: 86.18 kg

DRUGS (1)
  1. METHYLPHENIDATE 10 MG MALLINCKRODT PH [Suspect]
     Active Substance: METHYLPHENIDATE
     Indication: ATTENTION DEFICIT/HYPERACTIVITY DISORDER
     Dosage: 1 PILL
     Route: 048

REACTIONS (2)
  - Drug dispensing error [None]
  - Product packaging quantity issue [None]

NARRATIVE: CASE EVENT DATE: 20150105
